FAERS Safety Report 6788208-1 (Version None)
Quarter: 2010Q2

REPORT INFORMATION
  Report Type: 
  Country: None (occurrence: None)
  Receive Date: 20100621
  Receipt Date: 20100604
  Transmission Date: 20101027
  Serious: Yes (Hospitalization)
  Sender: FDA-Public Use
  Company Number: 2010002256

PATIENT
  Age: 71 Year
  Sex: Female

DRUGS (1)
  1. TARCEVA [Suspect]
     Indication: LUNG NEOPLASM MALIGNANT
     Dosage: 150 MG, QD, ORAL
     Route: 048
     Dates: start: 20100324

REACTIONS (4)
  - CEREBROVASCULAR ACCIDENT [None]
  - PSYCHOTIC DISORDER [None]
  - STOMATITIS [None]
  - THROMBOSIS [None]
